FAERS Safety Report 11121270 (Version 2)
Quarter: 2015Q2

REPORT INFORMATION
  Report Type: Spontaneous
  Country: DE (occurrence: None)
  Receive Date: 20150515
  Receipt Date: 20150610
  Transmission Date: 20150821
  Serious: Yes (Life-Threatening, Hospitalization, Other)
  Sender: FDA-Public Use
  Company Number: KAD201505-001143

PATIENT
  Age: 46 Year
  Sex: Male
  Weight: 90 kg

DRUGS (8)
  1. DOCITON (PROPRANOLOL HYDROCHLORIDE) (PROPRANOLOL HYDROCHLORIDE) [Concomitant]
  2. AZATHIOPRINE. [Concomitant]
     Active Substance: AZATHIOPRINE
  3. RIBAVIRIN. [Suspect]
     Active Substance: RIBAVIRIN
     Indication: HEPATITIS C
     Dosage: TABLET, 3 IN 1 DAY, ORAL
     Route: 048
     Dates: start: 20150228, end: 20150309
  4. VIEKIRAX (OMBITASVIR, PARITAPREVIR, RITONAVIR) [Suspect]
     Active Substance: OMBITASVIR\PARITAPREVIR\RITONAVIR
     Indication: HEPATITIS C
     Dosage: FILM-COATED TABLET, 2 IN 1 DAY, ORAL
     Route: 048
     Dates: start: 20150228, end: 20150309
  5. LANSOPRAZOLE. [Concomitant]
     Active Substance: LANSOPRAZOLE
  6. VELMETIA (SITAGLIPTIN PHOSPHATE, METFORMIN HYDROCHLORIDE) [Concomitant]
  7. EXVIERA (DASABUVIR) [Suspect]
     Active Substance: DASABUVIR
     Indication: HEPATITIS C
     Dosage: 25/150/100 MG (ONE IN 12 HOUR)
     Route: 048
     Dates: start: 20150228, end: 20150309
  8. MESALAZINE [Concomitant]
     Active Substance: MESALAMINE

REACTIONS (8)
  - Pulmonary congestion [None]
  - Haemodialysis [None]
  - Hepatorenal syndrome [None]
  - Hepatic failure [None]
  - Jaundice [None]
  - Liver transplant [None]
  - Hepatic cirrhosis [None]
  - Portal hypertension [None]

NARRATIVE: CASE EVENT DATE: 201503
